FAERS Safety Report 9352738 (Version 1)
Quarter: 2013Q2

REPORT INFORMATION
  Report Type: Spontaneous
  Country: US (occurrence: None)
  Receive Date: 20130614
  Receipt Date: 20130614
  Transmission Date: 20140414
  Serious: No
  Sender: FDA-Public Use
  Company Number: None

PATIENT
  Age: 62 Year
  Sex: Female

DRUGS (11)
  1. STIVARGA 40MG BAYER [Suspect]
     Indication: COLON CANCER
     Dosage: 160MG QD, PO 21DAYS ON+7DAYS OFF
     Route: 048
     Dates: start: 20130411, end: 20130606
  2. PANTOPRAZOL [Concomitant]
  3. PROAIR INH [Concomitant]
  4. HYDROCODON/APAP [Concomitant]
  5. IRON [Concomitant]
  6. VIT B [Concomitant]
  7. VITD [Concomitant]
  8. ETODOLAC [Concomitant]
  9. HYDROXYCHLOROQUINE [Concomitant]
  10. PROCHLORPERAZINE [Concomitant]
  11. GABAPENTIN [Concomitant]

REACTIONS (1)
  - Drug ineffective [None]
